FAERS Safety Report 7278945-7 (Version None)
Quarter: 2011Q1

REPORT INFORMATION
  Report Type: 
  Country: None (occurrence: None)
  Receive Date: 20110207
  Receipt Date: 20110125
  Transmission Date: 20110831
  Serious: Yes (Other)
  Sender: FDA-Public Use
  Company Number: PHHY2011US06207

PATIENT
  Sex: Female

DRUGS (1)
  1. RECLAST [Suspect]
     Dosage: 5 MG/ 100 ML, YEARLY
     Route: 042
     Dates: start: 20080101, end: 20090101

REACTIONS (1)
  - OSTEONECROSIS OF JAW [None]
